FAERS Safety Report 6997576-7 (Version None)
Quarter: 2010Q3

REPORT INFORMATION
  Report Type: 
  Country: None (occurrence: None)
  Receive Date: 20100918
  Receipt Date: 20091123
  Transmission Date: 20110219
  Serious: No
  Sender: FDA-Public Use
  Company Number: US-WYE-H11898109

PATIENT
  Sex: Female
  Weight: 79 kg

DRUGS (6)
  1. PRISTIQ [Suspect]
     Indication: DEPRESSION
     Route: 048
     Dates: start: 20090916, end: 20091027
  2. PRISTIQ [Suspect]
     Indication: ANXIETY
  3. CONJUGATED ESTROGENS [Concomitant]
  4. NEXIUM [Concomitant]
  5. CLONAZEPAM [Concomitant]
  6. SYNTHROID [Concomitant]

REACTIONS (4)
  - ARTHRALGIA [None]
  - DRUG INEFFECTIVE [None]
  - GRIP STRENGTH DECREASED [None]
  - PAIN IN EXTREMITY [None]
